FAERS Safety Report 24526477 (Version 1)
Quarter: 2024Q4

REPORT INFORMATION
  Report Type: Spontaneous
  Country: SE (occurrence: SE)
  Receive Date: 20241021
  Receipt Date: 20241021
  Transmission Date: 20250114
  Serious: Yes (Other)
  Sender: CURRAX PHARMACEUTICALS
  Company Number: None

PATIENT
  Age: 44 Year
  Sex: Female
  Weight: 81 kg

DRUGS (3)
  1. BUPROPION HYDROCHLORIDE\NALTREXONE HYDROCHLORIDE [Suspect]
     Active Substance: BUPROPION HYDROCHLORIDE\NALTREXONE HYDROCHLORIDE
     Indication: Overweight
     Dosage: STRENGTH 8/90 MG, 1 TABLET 1 TIME PER DAY TO START WITH
     Route: 048
     Dates: start: 20241001, end: 20241001
  2. ZOPICLONE [Concomitant]
     Active Substance: ZOPICLONE
     Indication: Product used for unknown indication
     Dosage: 1 PER NIGHT
     Route: 048
     Dates: start: 20080117
  3. BUPROPION HYDROCHLORIDE [Concomitant]
     Active Substance: BUPROPION HYDROCHLORIDE
     Indication: Product used for unknown indication
     Dosage: 1 PER DAY
     Route: 048
     Dates: start: 2022

REACTIONS (7)
  - Immunodeficiency [Recovering/Resolving]
  - Blister [Unknown]
  - Pruritus [Unknown]
  - Influenza like illness [Recovering/Resolving]
  - Rash [Not Recovered/Not Resolved]
  - Abdominal pain [Unknown]
  - Nausea [Unknown]

NARRATIVE: CASE EVENT DATE: 20241001
